FAERS Safety Report 16420639 (Version 2)
Quarter: 2019Q2

REPORT INFORMATION
  Report Type: Spontaneous
  Country: US (occurrence: US)
  Receive Date: 20190612
  Receipt Date: 20190612
  Transmission Date: 20190711
  Serious: Yes (Other)
  Sender: FDA-Public Use
  Company Number: US-JNJFOC-20190609644

PATIENT
  Sex: Male
  Weight: 68.04 kg

DRUGS (4)
  1. XARELTO [Suspect]
     Active Substance: RIVAROXABAN
     Indication: JUGULAR VEIN THROMBOSIS
     Route: 048
  2. XARELTO [Suspect]
     Active Substance: RIVAROXABAN
     Indication: JUGULAR VEIN THROMBOSIS
     Route: 048
  3. XARELTO [Suspect]
     Active Substance: RIVAROXABAN
     Indication: JUGULAR VEIN THROMBOSIS
     Route: 048
     Dates: start: 2012
  4. XARELTO [Suspect]
     Active Substance: RIVAROXABAN
     Indication: JUGULAR VEIN THROMBOSIS
     Route: 048

REACTIONS (13)
  - Gastric disorder [Unknown]
  - Gastrointestinal motility disorder [Unknown]
  - Polyarthritis [Unknown]
  - Off label use [Unknown]
  - Vascular stent thrombosis [Unknown]
  - Hernia hiatus repair [Unknown]
  - Spinal operation [Unknown]
  - Spondylitis [Unknown]
  - Product prescribing error [Unknown]
  - Angioplasty [Unknown]
  - Drug ineffective [Unknown]
  - Cholecystectomy [Unknown]
  - Abnormal loss of weight [Unknown]

NARRATIVE: CASE EVENT DATE: 2012
